FAERS Safety Report 5757550-5 (Version None)
Quarter: 2008Q2

REPORT INFORMATION
  Report Type: 
  Country: None (occurrence: None)
  Receive Date: 20080603
  Receipt Date: 20080523
  Transmission Date: 20081010
  Serious: Yes (Hospitalization)
  Sender: FDA-Public Use
  Company Number: JP-PFIZER INC-2008040886

PATIENT
  Sex: Female

DRUGS (19)
  1. CELECOX [Suspect]
     Indication: BACK PAIN
     Dosage: DAILY DOSE:200MG
     Route: 048
     Dates: start: 20080424, end: 20080507
  2. ALENDRONATE SODIUM [Concomitant]
     Indication: BACK PAIN
     Route: 048
     Dates: start: 20080424, end: 20080507
  3. LASIX [Concomitant]
     Indication: CARDIAC VALVE DISEASE
     Dosage: DAILY DOSE:20MG
     Route: 048
  4. LASIX [Concomitant]
     Indication: ATRIAL FIBRILLATION
  5. DIGOXIN [Concomitant]
     Indication: CARDIAC VALVE DISEASE
     Dosage: DAILY DOSE:.125MG
     Route: 048
  6. DIGOXIN [Concomitant]
     Indication: ATRIAL FIBRILLATION
  7. AMARYL [Concomitant]
     Indication: DIABETES MELLITUS
     Dosage: DAILY DOSE:1MG
     Route: 048
  8. LOCHOL [Concomitant]
     Indication: CARDIAC VALVE DISEASE
     Dosage: DAILY DOSE:20MG
     Route: 048
  9. LOCHOL [Concomitant]
     Indication: ATRIAL FIBRILLATION
  10. CIMETIDINE [Concomitant]
     Indication: COLON CANCER
     Dosage: DAILY DOSE:800MG
     Route: 048
  11. CIMETIDINE [Concomitant]
     Indication: HEPATECTOMY
  12. VASOLAN [Concomitant]
     Indication: ATRIAL FIBRILLATION
     Dosage: DAILY DOSE:120MG
     Route: 048
  13. MARZULENE S [Concomitant]
     Indication: COLON CANCER
     Dosage: DAILY DOSE:2GRAM
     Route: 048
  14. MARZULENE S [Concomitant]
     Indication: HEPATECTOMY
  15. BASEN [Concomitant]
     Indication: DIABETES MELLITUS
     Dosage: DAILY DOSE:.6MG
     Route: 048
  16. WARFARIN SODIUM [Concomitant]
     Indication: CARDIAC VALVE DISEASE
     Route: 048
  17. WARFARIN SODIUM [Concomitant]
     Indication: ATRIAL FIBRILLATION
  18. RHYTHMY [Concomitant]
     Indication: INSOMNIA
     Dosage: DAILY DOSE:1MG
     Route: 048
  19. KETOPROFEN [Concomitant]
     Indication: BACK PAIN
     Route: 062

REACTIONS (1)
  - PLEURAL EFFUSION [None]
